FAERS Safety Report 5507117-9 (Version None)
Quarter: 2007Q4

REPORT INFORMATION
  Report Type: 
  Country: None (occurrence: None)
  Receive Date: 20071105
  Receipt Date: 20071029
  Transmission Date: 20080405
  Serious: Yes (Life-Threatening)
  Sender: FDA-Public Use
  Company Number: TH-GILEAD-2007-0013109

PATIENT
  Age: 51 Year
  Sex: Male
  Weight: 55 kg

DRUGS (10)
  1. VIREAD [Suspect]
     Indication: HIV INFECTION
     Route: 048
     Dates: start: 20070507, end: 20070806
  2. LAMIVUDINE [Concomitant]
     Indication: HIV INFECTION
     Dates: start: 20070507
  3. LOPINAVIR AND RITONAVIR [Concomitant]
     Indication: HIV INFECTION
     Dates: start: 20070507
  4. COTRIMOXAZOLE [Concomitant]
     Indication: ANTIFUNGAL PROPHYLAXIS
     Dates: start: 20070507
  5. FLUCONAZOLE [Concomitant]
     Indication: ANTIFUNGAL PROPHYLAXIS
     Dates: start: 20070507
  6. ETHAMBUTOL HYDROCHLORIDE [Concomitant]
     Indication: MYCOBACTERIAL INFECTION
     Dates: start: 20070512
  7. AZITHROMYCIN [Concomitant]
     Indication: MYCOBACTERIAL INFECTION
     Dates: start: 20070512
  8. ISONIAZID [Concomitant]
     Indication: MYCOBACTERIAL INFECTION
     Dates: start: 20070521
  9. CIPROFLOXACIN [Concomitant]
     Indication: MYCOBACTERIAL INFECTION
     Dates: start: 20070521
  10. PREDNISOLONE [Concomitant]
     Dates: start: 20070521

REACTIONS (2)
  - HAEMODIALYSIS [None]
  - RENAL FAILURE ACUTE [None]
